FAERS Safety Report 4366376-9 (Version None)
Quarter: 2004Q2

REPORT INFORMATION
  Report Type: 
  Country: None (occurrence: None)
  Receive Date: 20040527
  Receipt Date: 20040312
  Transmission Date: 20050107
  Serious: No
  Sender: FDA-Public Use
  Company Number: US-GLAXOSMITHKLINE-A0502567A

PATIENT
  Age: 50 Year
  Sex: Male

DRUGS (7)
  1. VENTOLIN [Suspect]
     Indication: ASTHMA
     Dosage: 2PUFF FOUR TIMES PER DAY
     Route: 055
  2. PREDNISONE [Concomitant]
  3. ANTIBIOTICS [Concomitant]
  4. ERYTHROMYCIN [Concomitant]
  5. AZMACORT [Concomitant]
  6. AMOXICILLIN [Concomitant]
  7. BACTRIM [Concomitant]

REACTIONS (2)
  - HEART RATE INCREASED [None]
  - OSTEOPOROSIS [None]
